FAERS Safety Report 16637929 (Version 1)
Quarter: 2019Q3

REPORT INFORMATION
  Report Type: Spontaneous
  Country: GB (occurrence: GB)
  Receive Date: 20190726
  Receipt Date: 20190726
  Transmission Date: 20191004
  Serious: Yes (Other)
  Sender: FDA-Public Use
  Company Number: GB-TEVA-2019-GB-1083749

PATIENT
  Age: 61 Year
  Sex: Female

DRUGS (2)
  1. TRIMETHOPRIM. [Suspect]
     Active Substance: TRIMETHOPRIM
     Indication: URINARY TRACT INFECTION
     Dosage: 2 DOSAGE FORMS
     Route: 048
     Dates: start: 20190621, end: 20190621
  2. STEROID [Concomitant]
     Active Substance: UNSPECIFIED INGREDIENT
     Route: 045

REACTIONS (4)
  - Dyspnoea [Recovered/Resolved]
  - Pruritus genital [Recovered/Resolved]
  - Throat irritation [Recovered/Resolved]
  - Hypersensitivity [Recovered/Resolved]
